FAERS Safety Report 19322606 (Version 2)
Quarter: 2021Q3

REPORT INFORMATION
  Report Type: Report from Study
  Country: US (occurrence: US)
  Receive Date: 20210527
  Receipt Date: 20210927
  Transmission Date: 20211014
  Serious: Yes (Hospitalization)
  Sender: FDA-Public Use
  Company Number: US-SEATTLE GENETICS-2021SGN02391

PATIENT
  Sex: Female

DRUGS (4)
  1. SULFAMETHOXAZOLE;TRIMETHOPRIM [Concomitant]
     Active Substance: SULFAMETHOXAZOLE\TRIMETHOPRIM
  2. FUROSEMIDE. [Concomitant]
     Active Substance: FUROSEMIDE
  3. TUCATINIB [Suspect]
     Active Substance: TUCATINIB
     Indication: PRODUCT USED FOR UNKNOWN INDICATION
     Dosage: 300 MG, BID
  4. TUCATINIB [Suspect]
     Active Substance: TUCATINIB
     Dosage: 150 MG

REACTIONS (5)
  - Cerebrovascular accident [Unknown]
  - Blood glucose decreased [Unknown]
  - Feeding tube user [Unknown]
  - Urinary tract infection [Unknown]
  - Wrong technique in product usage process [Unknown]
